FAERS Safety Report 25100731 (Version 1)
Quarter: 2025Q1

REPORT INFORMATION
  Report Type: Spontaneous
  Country: FR (occurrence: FR)
  Receive Date: 20250320
  Receipt Date: 20250320
  Transmission Date: 20250408
  Serious: Yes (Other)
  Sender: RECKITT BENCKISER
  Company Number: None

PATIENT

DRUGS (1)
  1. SUBUTEX [Suspect]
     Active Substance: BUPRENORPHINE HYDROCHLORIDE
     Indication: Product used for unknown indication
     Route: 042
     Dates: start: 2017

REACTIONS (4)
  - Brachial artery entrapment syndrome [Not Recovered/Not Resolved]
  - Product use issue [Not Recovered/Not Resolved]
  - Local reaction [Unknown]
  - Drug dependence [Not Recovered/Not Resolved]

NARRATIVE: CASE EVENT DATE: 20170101
